FAERS Safety Report 9464671 (Version 2)
Quarter: 2013Q3

REPORT INFORMATION
  Report Type: Spontaneous
  Country: US (occurrence: US)
  Receive Date: 20130819
  Receipt Date: 20130819
  Transmission Date: 20140515
  Serious: Yes (Death, Hospitalization)
  Sender: FDA-Public Use
  Company Number: US-GLAXOSMITHKLINE-A0731269A

PATIENT
  Age: 61 Year
  Sex: Male
  Weight: 90.9 kg

DRUGS (4)
  1. AVANDIA [Suspect]
     Indication: TYPE 2 DIABETES MELLITUS
     Route: 048
     Dates: start: 200007, end: 200906
  2. TOPROL [Concomitant]
     Dates: start: 2005
  3. CARDIZEM [Concomitant]
     Dates: start: 1988
  4. NITROGLYCERINE [Concomitant]
     Dates: start: 1988

REACTIONS (5)
  - Myocardial infarction [Fatal]
  - Cardiac failure congestive [Unknown]
  - Chest pain [Unknown]
  - Injury [Unknown]
  - Pain [Unknown]
